FAERS Safety Report 9559979 (Version 3)
Quarter: 2013Q4

REPORT INFORMATION
  Report Type: Spontaneous
  Country: US (occurrence: US)
  Receive Date: 20130927
  Receipt Date: 20131029
  Transmission Date: 20140711
  Serious: No
  Sender: FDA-Public Use
  Company Number: US-PFIZER INC-2013275228

PATIENT
  Age: 57 Year
  Sex: Female

DRUGS (5)
  1. ZOLOFT [Suspect]
     Dosage: UNK
  2. EPIPEN [Suspect]
     Dosage: UNK
  3. ZOFRAN [Suspect]
     Dosage: UNK
  4. VITAMIN B [Suspect]
     Dosage: UNK
  5. TETANUS VACCINE [Suspect]
     Dosage: UNK

REACTIONS (4)
  - Drug hypersensitivity [Unknown]
  - Rash [Unknown]
  - Injection site swelling [Unknown]
  - Pyrexia [Unknown]
